FAERS Safety Report 9870409 (Version 1)
Quarter: 2014Q1

REPORT INFORMATION
  Report Type: Spontaneous
  Country: US (occurrence: US)
  Receive Date: 20140205
  Receipt Date: 20140205
  Transmission Date: 20141002
  Serious: Yes (Hospitalization)
  Sender: FDA-Public Use
  Company Number: US-BAXTER-2014BAX004836

PATIENT
  Age: 35 Year
  Sex: Male

DRUGS (2)
  1. DIANEAL LOW CALCIUM [Suspect]
     Indication: PERITONEAL DIALYSIS
     Route: 033
     Dates: start: 200610, end: 20131208
  2. DIANEAL LOW CALCIUM [Suspect]
     Route: 033
     Dates: start: 20140120

REACTIONS (2)
  - Umbilical hernia [Recovered/Resolved]
  - Intestinal strangulation [Recovered/Resolved]
